FAERS Safety Report 8407561-6 (Version None)
Quarter: 2012Q2

REPORT INFORMATION
  Report Type: 
  Country: None (occurrence: None)
  Receive Date: 20120604
  Receipt Date: 20120525
  Transmission Date: 20120825
  Serious: Yes (Hospitalization, Other)
  Sender: FDA-Public Use
  Company Number: JP-VERTEX PHARMACEUTICALS INC.-AE-2012-007325

PATIENT
  Age: 53 Year
  Sex: Female

DRUGS (7)
  1. REBETOL [Concomitant]
     Indication: HEPATITIS C
     Route: 048
     Dates: start: 20120229
  2. REBETOL [Concomitant]
     Route: 048
     Dates: start: 20120412, end: 20120420
  3. TELAVIC (TELAPREVIR) [Suspect]
     Indication: HEPATITIS C
     Route: 048
     Dates: start: 20120229, end: 20120420
  4. DIOVAN [Concomitant]
     Route: 048
     Dates: start: 20101203
  5. CANDESARTAN CILEXETIL [Concomitant]
     Route: 048
     Dates: start: 20120412
  6. PEG-INTRON [Concomitant]
     Route: 058
     Dates: start: 20120412, end: 20120419
  7. PEG-INTRON [Concomitant]
     Indication: HEPATITIS C
     Route: 058
     Dates: start: 20120229

REACTIONS (2)
  - C-REACTIVE PROTEIN INCREASED [None]
  - INFLUENZA [None]
